FAERS Safety Report 24159168 (Version 3)
Quarter: 2025Q1

REPORT INFORMATION
  Report Type: Report from Study
  Country: ZA (occurrence: ZA)
  Receive Date: 20240731
  Receipt Date: 20250329
  Transmission Date: 20250409
  Serious: Yes (Death, Hospitalization)
  Sender: ABBVIE
  Company Number: ZA-ABBOTT-2024A-1384967

PATIENT
  Age: 72 Year
  Sex: Male

DRUGS (29)
  1. CREON [Suspect]
     Active Substance: PANCRELIPASE AMYLASE\PANCRELIPASE LIPASE\PANCRELIPASE PROTEASE
     Indication: Pancreatic failure
     Dosage: 150 MG ONE CAPSULE THREE TIMES A DAY,??CREON 10000
     Route: 057
     Dates: start: 202405, end: 202407
  2. CREON [Suspect]
     Active Substance: PANCRELIPASE AMYLASE\PANCRELIPASE LIPASE\PANCRELIPASE PROTEASE
     Indication: Pancreatic failure
     Route: 048
     Dates: start: 202402, end: 202403
  3. RISPERIDONE [Concomitant]
     Active Substance: RISPERIDONE
     Indication: Mental disorder
     Dosage: 0.5 MG HALF A TABLET AT NIGHT
     Route: 048
  4. METOCLOPRAMIDE HYDROCHLORIDE [Concomitant]
     Active Substance: METOCLOPRAMIDE HYDROCHLORIDE
     Indication: Product used for unknown indication
     Route: 048
  5. DORMONOCT [Concomitant]
     Active Substance: LOPRAZOLAM
     Indication: Insomnia
     Dosage: 2 MG ONE TABLET AT NIGHT
     Route: 048
  6. OXYCODONE HYDROCHLORIDE [Concomitant]
     Active Substance: OXYCODONE HYDROCHLORIDE
     Indication: Surgery
     Dosage: 10 MG ONE CAPSULE SIX HOURLY
     Route: 048
  7. Vomiz [Concomitant]
     Indication: Product used for unknown indication
     Dosage: 8 MG ONE TABLET TWICE A DAY
     Route: 048
  8. TRAZODONE HYDROCHLORIDE [Concomitant]
     Active Substance: TRAZODONE HYDROCHLORIDE
     Indication: Depression
     Dosage: 3 TABLETS AT NIGHT
     Route: 048
  9. NALOXONE HYDROCHLORIDE\OXYCODONE HYDROCHLORIDE [Concomitant]
     Active Substance: NALOXONE HYDROCHLORIDE\OXYCODONE HYDROCHLORIDE
     Indication: Surgery
     Dosage: 10/5 MG ONE TABLET TWICE A DAY
     Route: 048
  10. NALOXONE HYDROCHLORIDE\OXYCODONE HYDROCHLORIDE [Concomitant]
     Active Substance: NALOXONE HYDROCHLORIDE\OXYCODONE HYDROCHLORIDE
     Indication: Surgery
     Dosage: 40/20 MG ONE TABLET AT NIGHT
     Route: 048
  11. Phipps milk of magnesia [Concomitant]
     Indication: Product used for unknown indication
     Route: 048
  12. Synaleve [Concomitant]
     Indication: Pain
     Dosage: TWO CAPSULES THREE TIMES A DAY
     Route: 048
  13. ACETAMINOPHEN [Concomitant]
     Active Substance: ACETAMINOPHEN
     Indication: Product used for unknown indication
     Dosage: 500 MG TWO TABLETS SIX HOURLY
     Route: 048
  14. FENTANYL [Concomitant]
     Active Substance: FENTANYL
     Indication: Pain
     Route: 061
  15. ALPRAZOLAM [Concomitant]
     Active Substance: ALPRAZOLAM
     Indication: Anxiety
     Route: 048
  16. MELATONIN [Concomitant]
     Active Substance: MELATONIN
     Indication: Insomnia
     Dosage: 2MG 3 TABLETS AT NIGHT
     Route: 048
  17. Dulcolax [Concomitant]
     Indication: Product used for unknown indication
     Route: 048
  18. ESCITALOPRAM [Concomitant]
     Active Substance: ESCITALOPRAM OXALATE
     Indication: Depression
     Dosage: 10MG ONE TABLET DAILY
     Route: 048
  19. PICOPREP [Concomitant]
     Active Substance: ANHYDROUS CITRIC ACID\MAGNESIUM OXIDE\SODIUM PICOSULFATE
     Indication: Product used for unknown indication
     Route: 048
  20. PICOPREP [Concomitant]
     Active Substance: ANHYDROUS CITRIC ACID\MAGNESIUM OXIDE\SODIUM PICOSULFATE
     Indication: Product used for unknown indication
     Route: 048
  21. NEUROBION [Concomitant]
     Active Substance: CYANOCOBALAMIN\PYRIDOXINE\THIAMINE
     Indication: Product used for unknown indication
     Dosage: ONE TABLET DAILY
     Route: 048
  22. Fybogel orange [Concomitant]
     Indication: Product used for unknown indication
     Route: 048
  23. Nozohaem [Concomitant]
     Indication: Product used for unknown indication
     Route: 061
  24. Nozohaem [Concomitant]
     Indication: Product used for unknown indication
     Route: 045
  25. RISPERIDONE [Concomitant]
     Active Substance: RISPERIDONE
     Indication: Mental disorder
     Route: 048
  26. CLOBAZAM [Concomitant]
     Active Substance: CLOBAZAM
     Indication: Anxiety
     Dosage: 10 MG ONE TABLET TWICE A DAY IF NECESSARY
     Route: 048
  27. CLOBAZAM [Concomitant]
     Active Substance: CLOBAZAM
     Indication: Anxiety
     Dosage: 10 MG ONE TABLET TWICE A DAY
     Route: 048
  28. ATIVAN [Concomitant]
     Active Substance: LORAZEPAM
     Indication: Anxiety
     Route: 048
  29. ZOLPIDEM TARTRATE [Concomitant]
     Active Substance: ZOLPIDEM TARTRATE
     Indication: Insomnia
     Route: 048

REACTIONS (4)
  - Death [Fatal]
  - Neoplasm malignant [Unknown]
  - Pancreatic carcinoma [Unknown]
  - Illness [Unknown]

NARRATIVE: CASE EVENT DATE: 20240901
